FAERS Safety Report 9507265 (Version 1)
Quarter: 2013Q3

REPORT INFORMATION
  Report Type: Spontaneous
  Country: FR (occurrence: FR)
  Receive Date: 20130909
  Receipt Date: 20130909
  Transmission Date: 20140515
  Serious: Yes (Life-Threatening, Hospitalization, Other)
  Sender: FDA-Public Use
  Company Number: FR-GENZYME-RENA-1002151

PATIENT
  Age: 79 Year
  Sex: Female

DRUGS (6)
  1. RENVELA [Suspect]
     Indication: HYPERPHOSPHATAEMIA
     Dosage: 0.8 G, UNK
     Route: 065
     Dates: start: 20130604, end: 20130724
  2. ISONIAZID [Suspect]
     Indication: LATENT TUBERCULOSIS
     Dosage: 250 MG, QD
     Route: 048
     Dates: end: 20130724
  3. INEGY [Suspect]
     Indication: HYPERCHOLESTEROLAEMIA
     Dosage: UNK
     Route: 065
     Dates: start: 20130604, end: 20130724
  4. TARDYFERON [Suspect]
     Indication: MINERAL SUPPLEMENTATION
     Dosage: 80 MG, QD
     Route: 048
     Dates: start: 20130604, end: 20130724
  5. KARDEGIC [Concomitant]
     Indication: PRODUCT USED FOR UNKNOWN INDICATION
     Dosage: UNK
     Route: 065
  6. ZOPLICONE [Concomitant]
     Indication: PRODUCT USED FOR UNKNOWN INDICATION
     Dosage: UNK
     Route: 065

REACTIONS (9)
  - Disseminated intravascular coagulation [Not Recovered/Not Resolved]
  - Hepatitis [Not Recovered/Not Resolved]
  - Loss of consciousness [Unknown]
  - Renal failure acute [Unknown]
  - Disorientation [Unknown]
  - Confusional state [Unknown]
  - Speech disorder [Unknown]
  - General physical health deterioration [Unknown]
  - Fall [Unknown]
